FAERS Safety Report 9207972 (Version 3)
Quarter: 2013Q2

REPORT INFORMATION
  Report Type: Spontaneous
  Country: FR (occurrence: FR)
  Receive Date: 20130403
  Receipt Date: 20130424
  Transmission Date: 20140414
  Serious: Yes (Other)
  Sender: FDA-Public Use
  Company Number: FR-ASTRAZENECA-2013SE20628

PATIENT
  Age: 22503 Day
  Sex: Female
  Weight: 75 kg

DRUGS (5)
  1. SYMBICORT TBH [Suspect]
     Indication: ASTHMA
     Dosage: 320/9 UG PER DOSE, 1 INHALATION TWICE DAILY
     Route: 055
     Dates: end: 20130227
  2. SYMBICORT TBH [Suspect]
     Indication: ASTHMA
     Dosage: 320/9 UG PER DOSE, 1 INHALATION TWICE DAILY
     Route: 055
     Dates: start: 20130228, end: 20130311
  3. SYMBICORT TBH [Suspect]
     Indication: ASTHMA
     Dosage: 400/12 MCG PER DOSE, FREQUENCY UNKNOWN
     Route: 055
     Dates: start: 20130228, end: 20130311
  4. SYMBICORT TBH [Suspect]
     Indication: ASTHMA
     Dosage: 320/9 MCG PER DOSE, 1 INHALATION TWICE DAILY
     Route: 055
     Dates: start: 20130312
  5. PYOSTACINE [Concomitant]
     Indication: ERYSIPELAS

REACTIONS (3)
  - Asthmatic crisis [Recovered/Resolved]
  - Erysipelas [Unknown]
  - Drug ineffective [Recovered/Resolved]
